FAERS Safety Report 5048495-7 (Version None)
Quarter: 2006Q3

REPORT INFORMATION
  Report Type: 
  Country: None (occurrence: None)
  Receive Date: 20060705
  Receipt Date: 20060623
  Transmission Date: 20061208
  Serious: Yes (Hospitalization)
  Sender: FDA-Public Use
  Company Number: 2006-06-0645

PATIENT
  Age: 48 Year
  Sex: Male

DRUGS (1)
  1. MOMETASONE FUROATE [Suspect]
     Indication: DERMATOSIS
     Dosage: 0.1% TOP-DERM
     Dates: start: 20060518, end: 20060518

REACTIONS (3)
  - HYPERTENSION [None]
  - RENAL DISORDER [None]
  - STRESS [None]
